FAERS Safety Report 15793993 (Version 4)
Quarter: 2019Q1

REPORT INFORMATION
  Report Type: Spontaneous
  Country: US (occurrence: US)
  Receive Date: 20190107
  Receipt Date: 20190131
  Transmission Date: 20190417
  Serious: Yes (Hospitalization, Other)
  Sender: FDA-Public Use
  Company Number: US-LUNDBECK-DKLU2058856

PATIENT
  Age: 56 Year
  Sex: Female
  Weight: 74 kg

DRUGS (9)
  1. NORTHERA [Suspect]
     Active Substance: DROXIDOPA
     Dosage: TITRATION DOSING. DAY 9-10 (AM, PM, HS)
     Route: 048
  2. NORTHERA [Suspect]
     Active Substance: DROXIDOPA
     Indication: ORTHOSTATIC HYPOTENSION
     Dosage: TITRATION DOSING. DAY 1-2 (AM, PM, HS)
     Route: 048
  3. NORTHERA [Suspect]
     Active Substance: DROXIDOPA
     Route: 048
     Dates: start: 20190114
  4. VITAMIN B12 [Concomitant]
     Active Substance: CYANOCOBALAMIN
     Indication: PRODUCT USED FOR UNKNOWN INDICATION
     Route: 065
  5. NORTHERA [Suspect]
     Active Substance: DROXIDOPA
     Dosage: TITRATION DOSING. DAY 3-4 (AM, PM, HS)
     Route: 048
  6. NORTHERA [Suspect]
     Active Substance: DROXIDOPA
     Dosage: TITRATION DOSING. DAY 5-6 (AM, PM, HS)
     Route: 048
  7. NORTHERA [Suspect]
     Active Substance: DROXIDOPA
     Dosage: TITRATION DOSING. DAY 11 ONWARDS (AM, PM, HS)
     Route: 048
  8. NORTHERA [Suspect]
     Active Substance: DROXIDOPA
     Dosage: TITRATION DOSING
     Route: 048
  9. NORTHERA [Suspect]
     Active Substance: DROXIDOPA
     Dosage: TITRATION DOSING. DAY 7-8 (AM, PM, HS)
     Route: 048

REACTIONS (4)
  - Skin laceration [Unknown]
  - Loss of consciousness [Recovered/Resolved]
  - Syncope [Recovered/Resolved]
  - Blood pressure decreased [Not Recovered/Not Resolved]

NARRATIVE: CASE EVENT DATE: 20190125
